FAERS Safety Report 5807815-3 (Version None)
Quarter: 2008Q3

REPORT INFORMATION
  Report Type: 
  Country: None (occurrence: None)
  Receive Date: 20080711
  Receipt Date: 20080702
  Transmission Date: 20090109
  Serious: Yes (Hospitalization, Other)
  Sender: FDA-Public Use
  Company Number: BR-PFIZER INC-2006052483

PATIENT
  Sex: Male

DRUGS (7)
  1. CADUET [Suspect]
     Indication: DYSLIPIDAEMIA
     Dosage: TEXT:5 MG/10 MG
     Route: 048
     Dates: start: 20060301, end: 20060501
  2. CADUET [Suspect]
     Indication: HYPERTENSION
  3. VALSARTAN [Concomitant]
     Route: 048
  4. ALLOPURINOL [Concomitant]
     Route: 048
     Dates: start: 20060101, end: 20060801
  5. COLCHICINE [Concomitant]
     Route: 048
     Dates: start: 20060101, end: 20060801
  6. HYDROCHLOROTHIAZIDE [Concomitant]
     Route: 048
  7. SIFROL [Concomitant]
     Route: 048

REACTIONS (17)
  - ABDOMINAL HERNIA REPAIR [None]
  - ARRHYTHMIA [None]
  - BLOOD CHOLESTEROL ABNORMAL [None]
  - BLOOD PRESSURE ABNORMAL [None]
  - CARDIOMYOPATHY [None]
  - CHOLELITHIASIS [None]
  - DEMENTIA ALZHEIMER'S TYPE [None]
  - GALLBLADDER DISORDER [None]
  - GALLBLADDER ENLARGEMENT [None]
  - HEPATIC ENZYME INCREASED [None]
  - HEPATIC STEATOSIS [None]
  - MACULAR DEGENERATION [None]
  - MYOCARDIAL INFARCTION [None]
  - OEDEMA PERIPHERAL [None]
  - PAIN IN EXTREMITY [None]
  - URINARY INCONTINENCE [None]
  - VENOUS OCCLUSION [None]
